FAERS Safety Report 5317854-7 (Version None)
Quarter: 2007Q2

REPORT INFORMATION
  Report Type: 
  Country: None (occurrence: None)
  Receive Date: 20070430
  Receipt Date: 20070416
  Transmission Date: 20071010
  Serious: Yes (Hospitalization)
  Sender: FDA-Public Use
  Company Number: L07-GER-01673-01

PATIENT
  Age: 70 Year
  Sex: Female

DRUGS (5)
  1. CARBAMAZEPINE [Suspect]
     Dosage: 500 MG QD
  2. ALPRAZOLAM [Concomitant]
  3. MIRTAZAPINE [Concomitant]
  4. DIAZEPAM [Concomitant]
  5. MELPERON (MELPERONE) [Concomitant]

REACTIONS (12)
  - ALANINE AMINOTRANSFERASE INCREASED [None]
  - ANXIETY [None]
  - DELIRIUM [None]
  - DISORIENTATION [None]
  - GAMMA-GLUTAMYLTRANSFERASE INCREASED [None]
  - HEPATIC ENZYME INCREASED [None]
  - HYPERTENSION [None]
  - IRRITABILITY [None]
  - MOOD SWINGS [None]
  - PANIC ATTACK [None]
  - RESTLESSNESS [None]
  - TACHYCARDIA [None]
